FAERS Safety Report 5341542-4 (Version None)
Quarter: 2007Q2

REPORT INFORMATION
  Report Type: 
  Country: None (occurrence: None)
  Receive Date: 20070601
  Receipt Date: 20070523
  Transmission Date: 20071010
  Serious: Yes (Hospitalization, Other)
  Sender: FDA-Public Use
  Company Number: US-JNJFOC-20070201190

PATIENT
  Sex: Male

DRUGS (10)
  1. PREZISTA [Suspect]
     Indication: HIV INFECTION
     Route: 048
  2. MK-0518 [Suspect]
     Indication: HIV INFECTION
     Route: 048
  3. RITONAVIR [Concomitant]
     Indication: HIV INFECTION
     Route: 048
  4. TRUVADA [Concomitant]
     Indication: HIV INFECTION
     Route: 048
  5. ZITHROMAX [Concomitant]
     Route: 065
  6. OPIUM [Concomitant]
     Route: 065
  7. EFFEXOR [Concomitant]
     Route: 065
  8. ZOFRAN [Concomitant]
     Route: 065
  9. BACTRIM DS [Concomitant]
     Route: 065
  10. ACETAMINOPHEN/HYDROCODONE BITARTRATE [Concomitant]
     Route: 065

REACTIONS (7)
  - CONFUSIONAL STATE [None]
  - DIARRHOEA [None]
  - DRUG HYPERSENSITIVITY [None]
  - ODYNOPHAGIA [None]
  - OESOPHAGEAL CANDIDIASIS [None]
  - PROCTALGIA [None]
  - PYREXIA [None]
